FAERS Safety Report 6027844-7 (Version None)
Quarter: 2009Q1

REPORT INFORMATION
  Report Type: 
  Country: None (occurrence: None)
  Receive Date: 20090105
  Receipt Date: 20081216
  Transmission Date: 20090719
  Serious: No
  Sender: FDA-Public Use
  Company Number: US-B.I. PHARMACEUTICALS,INC./RIDGEFIELD-2008-BP-17283BP

PATIENT
  Sex: Male

DRUGS (10)
  1. SPIRIVA [Suspect]
     Indication: CHRONIC OBSTRUCTIVE PULMONARY DISEASE
     Dosage: 18MCG
     Route: 055
     Dates: start: 20080801
  2. SPIRIVA [Suspect]
     Indication: DYSPNOEA
  3. ADVAIR DISKUS 250/50 [Concomitant]
  4. PRAVASTATIN [Concomitant]
     Indication: BLOOD CHOLESTEROL INCREASED
     Dosage: 40MG
  5. TRIAMTERENE AND HYDROCHLOROTHIAZIDE [Concomitant]
     Indication: HYPERTENSION
  6. IPRATROPIUM BROMIDE [Concomitant]
  7. ASPIRIN [Concomitant]
     Dosage: 81MG
  8. OMEGA MULTIVITAMIN [Concomitant]
  9. MATRIX MULTIVITAMIN [Concomitant]
  10. ATROVENT [Concomitant]

REACTIONS (1)
  - DRY MOUTH [None]
